FAERS Safety Report 6880368-7 (Version None)
Quarter: 2010Q3

REPORT INFORMATION
  Report Type: 
  Country: None (occurrence: None)
  Receive Date: 20100728
  Receipt Date: 20100719
  Transmission Date: 20110219
  Serious: Yes (Life-Threatening, Hospitalization)
  Sender: FDA-Public Use
  Company Number: BR-KINGPHARMUSA00001-K201000915

PATIENT
  Age: 47 Year
  Sex: Female

DRUGS (3)
  1. TAPAZOLE [Suspect]
     Indication: BASEDOW'S DISEASE
     Dosage: 40 MG, QD
  2. SIBUTRAMINE [Suspect]
     Indication: OBESITY
     Dosage: 10 MG, QD
  3. DIET FORMULATIONS FOR TREATMENT OF OBESITY [Suspect]
     Indication: OBESITY
     Dosage: UNK

REACTIONS (6)
  - ABDOMINAL PAIN [None]
  - DRUG INTERACTION [None]
  - HEPATIC NECROSIS [None]
  - HEPATITIS CHOLESTATIC [None]
  - JAUNDICE [None]
  - LIVER FUNCTION TEST ABNORMAL [None]
